FAERS Safety Report 6809765-2 (Version None)
Quarter: 2010Q2

REPORT INFORMATION
  Report Type: 
  Country: None (occurrence: None)
  Receive Date: 20100630
  Receipt Date: 20100624
  Transmission Date: 20101027
  Serious: Yes (Hospitalization)
  Sender: FDA-Public Use
  Company Number: DK-B.I. PHARMACEUTICALS,INC./RIDGEFIELD-2010-SW-00207DB

PATIENT
  Sex: Male

DRUGS (13)
  1. SIFROL TAB 0.088 MG [Suspect]
     Indication: RESTLESS LEGS SYNDROME
     Dosage: DAILY DOSE: MAX X 3
     Route: 048
     Dates: start: 20100101, end: 20100501
  2. SPIRIVA [Concomitant]
     Indication: CHRONIC OBSTRUCTIVE PULMONARY DISEASE
     Dosage: 1 PUF
     Route: 055
  3. AIROMIR [Concomitant]
     Indication: BRONCHOSPASM
     Dosage: FORM: PRESSURIZED INHALATION, SUSPENSION, STRENGTH: 0.1 MG/DOSE
     Route: 055
  4. DOLOL [Concomitant]
     Indication: PAIN
     Dosage: FORM: HARD CAPSULE,
     Route: 048
  5. FURIX [Concomitant]
     Indication: DIURETIC THERAPY
     Dosage: FORM: SOLUTION FOR INJECTION, STRENGTH: 10 MG/ML,
     Route: 042
  6. KININ ^DAK^ [Concomitant]
     Indication: MUSCLE SPASMS
     Dosage: FORM: FILM COATED TABLETS,
     Route: 048
  7. DOLOL RETARD UNO [Concomitant]
     Dosage: 200 MG
     Route: 048
  8. ESOMEPRAZOL ^KRKA^ [Concomitant]
     Indication: GASTROOESOPHAGEAL REFLUX DISEASE
     Dosage: 80 MG
     Route: 048
  9. SERETIDE [Concomitant]
     Indication: CHRONIC OBSTRUCTIVE PULMONARY DISEASE
     Dosage: 4 PUF
     Route: 055
  10. MIDAZOLAM ^HAMELN^ [Concomitant]
     Indication: SEDATIVE THERAPY
     Dosage: FOMR: SOLUTION FOR INJECTION, STRENGTH: 5 MG/ML
     Route: 042
  11. MORFIN ^DAK^ [Concomitant]
     Indication: PAIN
     Dosage: FORM: SOLUTION FOR INJECTION, STRENGTH: 20 MG/ML
     Route: 030
  12. ROBINUL [Concomitant]
     Dosage: FORM: SOLUTION FOR INJECTION, STRENGTH: 0,2 MG/ML, INDICATION, RALES
     Route: 030
  13. LACTULOSE [Concomitant]
     Dosage: DOSE: 15-20 ML ONCE DAILY AS SCHEDULE
     Route: 048

REACTIONS (3)
  - AGGRESSION [None]
  - PSYCHOTIC DISORDER [None]
  - SELF INJURIOUS BEHAVIOUR [None]
